FAERS Safety Report 4600046-4 (Version None)
Quarter: 2005Q1

REPORT INFORMATION
  Report Type: 
  Country: None (occurrence: None)
  Receive Date: 20050307
  Receipt Date: 20050222
  Transmission Date: 20050727
  Serious: Yes (Hospitalization)
  Sender: FDA-Public Use
  Company Number: FR-BRISTOL-MYERS SQUIBB COMPANY-12870333

PATIENT
  Age: 56 Year
  Sex: Female

DRUGS (6)
  1. BLEOMYCIN SULFATE [Suspect]
     Indication: B-CELL LYMPHOMA
     Route: 042
     Dates: start: 20041224, end: 20041228
  2. ENDOXAN [Suspect]
     Indication: B-CELL LYMPHOMA
     Dosage: DOSE UNIT = G
     Route: 042
     Dates: start: 20041224, end: 20041224
  3. DOXORUBICIN [Suspect]
     Indication: B-CELL LYMPHOMA
     Route: 042
     Dates: start: 20041224, end: 20041224
  4. MABTHERA [Suspect]
     Indication: B-CELL LYMPHOMA
     Route: 042
     Dates: start: 20041224, end: 20041224
  5. ELDISINE [Suspect]
     Indication: B-CELL LYMPHOMA
     Route: 042
     Dates: start: 20041224, end: 20041228
  6. FASTURTEC [Suspect]
     Indication: B-CELL LYMPHOMA
     Route: 042
     Dates: start: 20041224, end: 20041224

REACTIONS (5)
  - ABDOMINAL PAIN UPPER [None]
  - CONSTIPATION [None]
  - FAECALOMA [None]
  - HEADACHE [None]
  - ORAL CANDIDIASIS [None]
